FAERS Safety Report 6217634-4 (Version None)
Quarter: 2009Q2

REPORT INFORMATION
  Report Type: 
  Country: None (occurrence: None)
  Receive Date: 20090608
  Receipt Date: 20090505
  Transmission Date: 20091009
  Serious: No
  Sender: FDA-Public Use
  Company Number: A0782561A

PATIENT
  Age: 54 Year
  Sex: Female

DRUGS (5)
  1. BUPROPION HYDROCHLORIDE [Suspect]
     Indication: DEPRESSION
     Dosage: 300MG PER DAY
     Route: 048
     Dates: start: 20000101
  2. SOMA [Concomitant]
     Indication: SLEEP DISORDER
  3. SYNTHROID [Concomitant]
  4. PROZAC [Concomitant]
  5. NAPROSYN [Concomitant]

REACTIONS (3)
  - DEPRESSION [None]
  - DRUG INEFFECTIVE [None]
  - PRURITUS [None]
